FAERS Safety Report 6022160-1 (Version None)
Quarter: 2008Q4

REPORT INFORMATION
  Report Type: 
  Country: None (occurrence: None)
  Receive Date: 20081229
  Receipt Date: 20081118
  Transmission Date: 20090506
  Serious: Yes (Hospitalization)
  Sender: FDA-Public Use
  Company Number: HR-B.I. PHARMACEUTICALS,INC./RIDGEFIELD-2008-AP-00274AP

PATIENT
  Sex: Female

DRUGS (1)
  1. MOVALIS [Suspect]
     Indication: SPONDYLITIS
     Dosage: 15MG
     Route: 048
     Dates: start: 20081030, end: 20081030

REACTIONS (7)
  - BLOOD PRESSURE INCREASED [None]
  - CHEST DISCOMFORT [None]
  - HEART RATE INCREASED [None]
  - LIP EXFOLIATION [None]
  - SKIN EXFOLIATION [None]
  - SWEAT GLAND DISORDER [None]
  - TACHYCARDIA [None]
